FAERS Safety Report 10785756 (Version 2)
Quarter: 2015Q1

REPORT INFORMATION
  Report Type: Report from Study
  Country: US (occurrence: US)
  Receive Date: 20150211
  Receipt Date: 20150211
  Transmission Date: 20150721
  Serious: Yes (Other)
  Sender: FDA-Public Use
  Company Number: US-SA-2015SA014948

PATIENT
  Sex: Male

DRUGS (3)
  1. LANTUS SOLOSTAR [Suspect]
     Active Substance: INSULIN GLARGINE
     Route: 065
  2. APIDRA SOLOSTAR [Suspect]
     Active Substance: INSULIN GLULISINE
     Route: 065
  3. SOLOSTAR [Concomitant]
     Active Substance: DEVICE

REACTIONS (1)
  - Cerebrovascular accident [Unknown]
